FAERS Safety Report 5334881-4 (Version None)
Quarter: 2007Q2

REPORT INFORMATION
  Report Type: 
  Country: None (occurrence: None)
  Receive Date: 20070525
  Receipt Date: 20070523
  Transmission Date: 20071010
  Serious: Yes (Hospitalization)
  Sender: FDA-Public Use
  Company Number: DE-ASTRAZENECA-2007AC00931

PATIENT
  Age: 28 Month
  Sex: Male

DRUGS (5)
  1. PROPOFOL [Suspect]
  2. PHENYTOIN [Suspect]
     Route: 042
  3. CLONIDIN [Suspect]
  4. THIOPENTAL SODIUM [Suspect]
  5. CATECHOLAMINE [Suspect]

REACTIONS (1)
  - STATUS EPILEPTICUS [None]
